FAERS Safety Report 6270835-1 (Version None)
Quarter: 2009Q3

REPORT INFORMATION
  Report Type: 
  Country: None (occurrence: None)
  Receive Date: 20090716
  Receipt Date: 20090714
  Transmission Date: 20100115
  Serious: Yes (Death)
  Sender: FDA-Public Use
  Company Number: PHHY2009BR28765

PATIENT
  Sex: Male

DRUGS (4)
  1. EXFORGE [Suspect]
     Indication: HYPERTENSION
     Dosage: 1 DF IN THE MORNING
     Route: 048
  2. DIOVAN [Suspect]
     Dosage: 80 MG, UNK
  3. LASIX [Concomitant]
     Indication: OEDEMA
     Dosage: 1 DF DAILY
  4. DIETHYL-STILBESTROL TAB [Concomitant]
     Indication: PROSTATIC DISORDER
     Dosage: 2 TIMES DAILY

REACTIONS (1)
  - CARDIAC ARREST [None]
